FAERS Safety Report 12492678 (Version 2)
Quarter: 2016Q2

REPORT INFORMATION
  Report Type: Spontaneous
  Country: JP (occurrence: JP)
  Receive Date: 20160623
  Receipt Date: 20160630
  Transmission Date: 20160815
  Serious: Yes (Hospitalization, Other)
  Sender: FDA-Public Use
  Company Number: JP-GLAXOSMITHKLINE-JP2016JPN077361

PATIENT
  Age: 17 Year
  Sex: Male
  Weight: 59 kg

DRUGS (4)
  1. LAMICTAL [Suspect]
     Active Substance: LAMOTRIGINE
     Indication: FRONTAL LOBE EPILEPSY
     Dosage: 25 MG, QOD
     Route: 048
     Dates: start: 20140811
  2. TOPINA [Suspect]
     Active Substance: TOPIRAMATE
     Dosage: UNK
     Route: 048
  3. LAMICTAL [Suspect]
     Active Substance: LAMOTRIGINE
     Dosage: 75 MG, 1D
     Route: 048
     Dates: end: 20141215
  4. E KEPPRA [Suspect]
     Active Substance: LEVETIRACETAM
     Dosage: UNK
     Route: 048

REACTIONS (7)
  - Disorientation [Unknown]
  - Rash [Unknown]
  - Dermatitis atopic [Not Recovered/Not Resolved]
  - Status epilepticus [Recovering/Resolving]
  - Seizure cluster [Recovering/Resolving]
  - Loss of consciousness [Unknown]
  - Somnolence [Unknown]

NARRATIVE: CASE EVENT DATE: 2014
